FAERS Safety Report 9156787 (Version 1)
Quarter: 2013Q1

REPORT INFORMATION
  Report Type: Spontaneous
  Country: DK (occurrence: None)
  Receive Date: 20130208
  Receipt Date: 20130208
  Transmission Date: 20140127
  Serious: Yes (Life-Threatening, Hospitalization, Disabling)
  Sender: FDA-Public Use
  Company Number: 2013MA000869

PATIENT
  Age: 28 Year
  Sex: Male

DRUGS (2)
  1. TRAMADOL HYDROCHLORIDE TABLETS, 50 MG (PUREPAC) (TRAMADOL) [Suspect]
     Indication: PAIN
     Dosage: 1 DF ; TID ;
     Dates: start: 20120521
  2. FEVERALL (ACETAMINOPHEN RECTAL SUPPOSITORIES) 650 MG (ALPHARMA) (PARACETAMOL) [Suspect]
     Dosage: 1 DF; TID ; PO
     Dates: start: 20120521

REACTIONS (2)
  - Toxicity to various agents [None]
  - Overdose [None]
